FAERS Safety Report 6371493-8 (Version None)
Quarter: 2009Q3

REPORT INFORMATION
  Report Type: 
  Country: None (occurrence: None)
  Receive Date: 20090923
  Receipt Date: 20071005
  Transmission Date: 20100115
  Serious: Yes (Hospitalization, Other)
  Sender: FDA-Public Use
  Company Number: US-ASTRAZENECA-2007UW09229

PATIENT
  Age: 53 Year
  Sex: Female
  Weight: 68.9 kg

DRUGS (17)
  1. SEROQUEL [Suspect]
     Indication: DEPRESSION
     Dosage: 100 - 300 MG
     Route: 048
     Dates: start: 20040830
  2. SEROQUEL [Suspect]
     Indication: BIPOLAR DISORDER
     Dosage: 100 - 300 MG
     Route: 048
     Dates: start: 20040830
  3. SEROQUEL [Suspect]
     Dosage: 5 PILLS
     Route: 048
     Dates: end: 20060301
  4. SEROQUEL [Suspect]
     Dosage: 5 PILLS
     Route: 048
     Dates: end: 20060301
  5. ZYPREXA [Suspect]
     Dosage: 2.5 - 5 MG
     Route: 048
     Dates: start: 20000310
  6. ZYPREXA [Suspect]
  7. RISPERDAL [Concomitant]
     Dosage: 1-5 PILLS
  8. ABILIFY [Concomitant]
  9. CLOZARIL [Concomitant]
  10. GEODON [Concomitant]
  11. LITHIUM [Concomitant]
  12. DEPAKOTE [Concomitant]
  13. LAMICTAL [Concomitant]
     Route: 048
  14. LITHIUM CARBONATE [Concomitant]
     Route: 048
  15. KLONOPIN [Concomitant]
     Route: 048
  16. GLUCOPHAGE [Concomitant]
     Route: 048
  17. TRAZODONE HCL [Concomitant]
     Route: 048

REACTIONS (4)
  - DIABETES MELLITUS [None]
  - PANCREATITIS [None]
  - TYPE 2 DIABETES MELLITUS [None]
  - WEIGHT INCREASED [None]
